FAERS Safety Report 4679662-X (Version None)
Quarter: 2005Q2

REPORT INFORMATION
  Report Type: 
  Country: None (occurrence: None)
  Receive Date: 20050602
  Receipt Date: 20050523
  Transmission Date: 20051028
  Serious: Yes (Hospitalization)
  Sender: FDA-Public Use
  Company Number: US-JNJFOC-20050506177

PATIENT
  Age: 57 Year
  Sex: Female

DRUGS (4)
  1. RISPERDAL CONSTA [Suspect]
     Indication: AFFECTIVE DISORDER
     Route: 030
  2. RISPERDAL CONSTA [Suspect]
     Indication: SCHIZOAFFECTIVE DISORDER
     Route: 030
  3. RISPERDAL [Suspect]
     Indication: AFFECTIVE DISORDER
     Route: 049
  4. RISPERDAL [Suspect]
     Indication: SCHIZOAFFECTIVE DISORDER
     Dosage: TAKEN IN COMBINATION WITH RISPERIDONE MICROSPHERES FOR 9 MONTHS.
     Route: 049

REACTIONS (3)
  - ARRHYTHMIA [None]
  - BLOOD PROLACTIN INCREASED [None]
  - VERTIGO [None]
